FAERS Safety Report 4357556-7 (Version None)
Quarter: 2004Q2

REPORT INFORMATION
  Report Type: 
  Country: None (occurrence: None)
  Receive Date: 20040510
  Receipt Date: 20040428
  Transmission Date: 20050107
  Serious: Yes (Hospitalization)
  Sender: FDA-Public Use
  Company Number: 236568

PATIENT
  Age: 62 Year
  Sex: Female

DRUGS (1)
  1. VAGIFEM [Suspect]

REACTIONS (3)
  - INJURY [None]
  - VAGINAL DISORDER [None]
  - VAGINAL HAEMORRHAGE [None]
